FAERS Safety Report 10486320 (Version 2)
Quarter: 2015Q1

REPORT INFORMATION
  Report Type: Spontaneous
  Country: US (occurrence: US)
  Receive Date: 20141001
  Receipt Date: 20150123
  Transmission Date: 20150720
  Serious: Yes (Hospitalization)
  Sender: FDA-Public Use
  Company Number: US-BAYER-2014-144934

PATIENT
  Age: 20 Year
  Sex: Female
  Weight: 54.42 kg

DRUGS (2)
  1. MIRENA [Suspect]
     Active Substance: LEVONORGESTREL
     Indication: MENORRHAGIA
  2. MIRENA [Suspect]
     Active Substance: LEVONORGESTREL
     Indication: CONTRACEPTION
     Dosage: 20 MCG/24HR, CONT
     Route: 015
     Dates: start: 20120518, end: 20121019

REACTIONS (9)
  - Menorrhagia [None]
  - Device difficult to use [None]
  - Injury [None]
  - Pelvic pain [None]
  - Device dislocation [None]
  - Abdominal pain lower [None]
  - Constipation [None]
  - Uterine perforation [None]
  - Scar [None]

NARRATIVE: CASE EVENT DATE: 201209
